FAERS Safety Report 23385563 (Version 1)
Quarter: 2024Q1

REPORT INFORMATION
  Report Type: Spontaneous
  Country: CN (occurrence: None)
  Receive Date: 20240110
  Receipt Date: 20240110
  Transmission Date: 20240409
  Serious: Yes (Other)
  Sender: FDA-Public Use
  Company Number: CN-ROCHE-3487418

PATIENT
  Age: 61 Year
  Sex: Male
  Weight: 72.5 kg

DRUGS (4)
  1. MABTHERA [Suspect]
     Active Substance: RITUXIMAB
     Indication: Follicular lymphoma
     Dosage: FOR 7TH CYCLE OF TREATMENT, ADMINISTRATION ON 6/DEC/2023
     Route: 041
     Dates: start: 20231206
  2. MABTHERA [Suspect]
     Active Substance: RITUXIMAB
     Dosage: FOR 7TH CYCLE OF TREATMENT, ADMINISTRATION ON 6/DEC/2023
     Route: 041
     Dates: start: 20231206
  3. BENDAMUSTINE HYDROCHLORIDE [Concomitant]
     Active Substance: BENDAMUSTINE HYDROCHLORIDE
     Indication: Follicular lymphoma
     Dosage: NO ADMINISTRATION BEFORE ADVERSE EVENTS
  4. LENALIDOMIDE [Concomitant]
     Active Substance: LENALIDOMIDE
     Indication: Follicular lymphoma
     Dosage: NO ADMINISTRATION BEFORE ADVERSE EVENTS

REACTIONS (2)
  - Blood pressure increased [Recovering/Resolving]
  - Alopecia [Recovering/Resolving]

NARRATIVE: CASE EVENT DATE: 20231206
